FAERS Safety Report 21487975 (Version 1)
Quarter: 2022Q4

REPORT INFORMATION
  Report Type: Spontaneous
  Country: GB (occurrence: GB)
  Receive Date: 20221020
  Receipt Date: 20221020
  Transmission Date: 20230112
  Serious: Yes (Disabling)
  Sender: FDA-Public Use
  Company Number: None

PATIENT
  Age: 86 Year
  Sex: Female
  Weight: 64 kg

DRUGS (25)
  1. RANEXA [Suspect]
     Active Substance: RANOLAZINE
     Indication: Product used for unknown indication
     Route: 065
  2. RANEXA [Suspect]
     Active Substance: RANOLAZINE
     Dosage: 1 (DOSAGE FORM), TWICE DAILY
     Route: 065
     Dates: start: 20220915, end: 20220930
  3. CALCIUM CARBONATE\CHOLECALCIFEROL [Concomitant]
     Active Substance: CALCIUM CARBONATE\CHOLECALCIFEROL
     Indication: Product used for unknown indication
     Dosage: 1 DF THAT SHOULD BE SUCKED OR CHEWED, TWICE DAILY
     Route: 065
     Dates: start: 20220504
  4. CHLORHEXIDINE HYDROCHLORIDE\NEOMYCIN SULFATE [Concomitant]
     Active Substance: CHLORHEXIDINE HYDROCHLORIDE\NEOMYCIN SULFATE
     Indication: Product used for unknown indication
     Dosage: 1 DF, 4 TIMES DAILY APPLIED TO NOSTRILS, FOR 10 DAYS
     Route: 065
     Dates: start: 20220817, end: 20220827
  5. ALBUTEROL SULFATE [Concomitant]
     Active Substance: ALBUTEROL SULFATE
     Indication: Product used for unknown indication
     Dosage: ONE TO TWO PUFFS UP TO FOUR  TIMES  A  DAY
     Route: 055
     Dates: start: 20220504
  6. TRELEGY ELLIPTA [Concomitant]
     Active Substance: FLUTICASONE FUROATE\UMECLIDINIUM BROMIDE\VILANTEROL TRIFENATATE
     Indication: Product used for unknown indication
     Dosage: 1 DF, CYCLICALLY
     Route: 055
     Dates: start: 20220504
  7. DILTIAZEM [Concomitant]
     Active Substance: DILTIAZEM
     Indication: Product used for unknown indication
     Dosage: 1 DF (DOSAGE FORM), DAILY, AT NIGHT AS PER DISCHARGE LETTER
     Route: 065
     Dates: start: 20220504
  8. ALENDRONIC ACID [Concomitant]
     Active Substance: ALENDRONIC ACID
     Indication: Product used for unknown indication
     Dosage: 1  DF,  WEEKLY,  ON  THE  SAME  DAY  OF  EACH  WEEK
     Route: 065
     Dates: start: 20220504
  9. AMITRIPTYLINE HYDROCHLORIDE [Concomitant]
     Active Substance: AMITRIPTYLINE HYDROCHLORIDE
     Indication: Pain
     Dosage: 1 DF, DAILY AT NIGHT
     Route: 065
     Dates: start: 20220504
  10. AMOXICILLIN [Concomitant]
     Active Substance: AMOXICILLIN
     Indication: Product used for unknown indication
     Dosage: 1 DF, THREE TIMES DAILY, FOR 14 DAYS
     Route: 065
     Dates: start: 20220817, end: 20220831
  11. ATORVASTATIN [Concomitant]
     Active Substance: ATORVASTATIN
     Indication: Product used for unknown indication
     Dosage: 1  DF,  DAILY
     Route: 065
     Dates: start: 20220504
  12. AZITHROMYCIN [Concomitant]
     Active Substance: AZITHROMYCIN
     Indication: Prophylaxis
     Dosage: 1 DF, THREE TIMES A WEEK, FOR PREVENTION OF EXACERBATIONS OF AN UNKNOWN CONDITION
     Route: 065
     Dates: start: 20220504
  13. CARBOCYSTEINE [Concomitant]
     Active Substance: CARBOCYSTEINE
     Indication: Product used for unknown indication
     Dosage: 2 DF, TWICE DAILY
     Route: 065
     Dates: start: 20220504
  14. CLOPIDOGREL [Concomitant]
     Active Substance: CLOPIDOGREL BISULFATE
     Indication: Product used for unknown indication
     Dosage: 1  DF,  DAILY
     Route: 065
     Dates: start: 20220504
  15. DOXAZOSIN [Concomitant]
     Active Substance: DOXAZOSIN MESYLATE
     Indication: Product used for unknown indication
     Dosage: 1 DF, TWICE DAILY
     Route: 065
     Dates: start: 20220530
  16. DOXYCYCLINE [Concomitant]
     Active Substance: DOXYCYCLINE
     Indication: Product used for unknown indication
     Dosage: 1 DF, TWICE DAILY
     Route: 065
     Dates: start: 20220930
  17. FERROUS FUMARATE [Concomitant]
     Active Substance: FERROUS FUMARATE
     Indication: Product used for unknown indication
     Route: 065
     Dates: start: 20220504
  18. NITROGLYCERIN [Concomitant]
     Active Substance: NITROGLYCERIN
     Indication: Product used for unknown indication
     Dosage: ONE TO TWO DOSES (THEN C...
     Route: 065
     Dates: start: 20220504
  19. LANSOPRAZOLE [Concomitant]
     Active Substance: LANSOPRAZOLE
     Indication: Product used for unknown indication
     Dosage: 1 DF, DAILY
     Route: 065
     Dates: start: 20220504
  20. LEVOTHYROXINE [Concomitant]
     Active Substance: LEVOTHYROXINE
     Indication: Product used for unknown indication
     Dosage: 1 DF, DAILY
     Route: 065
     Dates: start: 20220504
  21. MONTELUKAST [Concomitant]
     Active Substance: MONTELUKAST SODIUM
     Indication: Product used for unknown indication
     Dosage: 1 DF, DAILY AT NIGHT
     Route: 065
     Dates: start: 20220504
  22. NICORANDIL [Concomitant]
     Active Substance: NICORANDIL
     Indication: Cardiovascular event prophylaxis
     Dosage: 1 DF, TWICE DAILY TO HELP PREVENT ANGINA
     Route: 065
     Dates: start: 20220504
  23. NITROFURANTOIN [Concomitant]
     Active Substance: NITROFURANTOIN
     Indication: Product used for unknown indication
     Dosage: 1 DF, TWICE DAILY, FOR 3 DAYS
     Route: 065
     Dates: start: 20220826, end: 20220829
  24. PREGABALIN [Concomitant]
     Active Substance: PREGABALIN
     Indication: Product used for unknown indication
     Dosage: 1 DF, DAILY AT NIGHT
     Route: 065
     Dates: start: 20220504
  25. TRIMETHOPRIM [Concomitant]
     Active Substance: TRIMETHOPRIM
     Indication: Product used for unknown indication
     Dosage: 1 DF, TWICE DAILY FOR SEVEN DAYS
     Route: 065
     Dates: start: 20220701, end: 20220708

REACTIONS (5)
  - Malaise [Unknown]
  - Palpitations [Unknown]
  - Nausea [Unknown]
  - Headache [Unknown]
  - Dysuria [Unknown]
